FAERS Safety Report 5112795-2 (Version None)
Quarter: 2006Q3

REPORT INFORMATION
  Report Type: 
  Country: None (occurrence: None)
  Receive Date: 20060922
  Receipt Date: 20060601
  Transmission Date: 20061208
  Serious: Yes (Hospitalization)
  Sender: FDA-Public Use
  Company Number: 2006UW10576

PATIENT
  Age: 13 Year
  Sex: Male

DRUGS (4)
  1. SEROQUEL [Suspect]
     Indication: AGGRESSION
     Route: 048
     Dates: start: 20060329, end: 20060426
  2. MAXALT [Concomitant]
     Indication: MIGRAINE
     Route: 048
  3. LEXAPRO [Concomitant]
  4. TOPAMAX [Concomitant]

REACTIONS (4)
  - HEPATIC STEATOSIS [None]
  - HEPATOMEGALY [None]
  - LIVER FUNCTION TEST ABNORMAL [None]
  - VOMITING [None]
